FAERS Safety Report 16019524 (Version 1)
Quarter: 2019Q1

REPORT INFORMATION
  Report Type: Spontaneous
  Country: JP (occurrence: JP)
  Receive Date: 20190228
  Receipt Date: 20190228
  Transmission Date: 20190418
  Serious: Yes (Other)
  Sender: FDA-Public Use
  Company Number: JP-TEVA-2019-JP-1019864

PATIENT
  Age: 7 Decade
  Sex: Female

DRUGS (4)
  1. BENDAMUSTINE HYDROCHLORIDE. [Suspect]
     Active Substance: BENDAMUSTINE HYDROCHLORIDE
     Indication: EXTRANODAL MARGINAL ZONE B-CELL LYMPHOMA (MALT TYPE)
     Dosage: 90MG/M2X1/DAY, CYCLIC (C1)
     Route: 042
     Dates: start: 20181114, end: 20181115
  2. RITUXIMAB. [Suspect]
     Active Substance: RITUXIMAB
     Indication: EXTRANODAL MARGINAL ZONE B-CELL LYMPHOMA (MALT TYPE)
     Dosage: 375MG/M2X1/DAY, CYCLIC (C1)
     Route: 041
     Dates: start: 20181114
  3. BENDAMUSTINE HYDROCHLORIDE. [Suspect]
     Active Substance: BENDAMUSTINE HYDROCHLORIDE
     Dosage: 90MG/M2X1/DAY, CYCLIC
     Route: 042
     Dates: start: 20190213, end: 20190213
  4. RITUXIMAB. [Suspect]
     Active Substance: RITUXIMAB
     Dosage: 375MG/M2X1/DAY, CYCLIC
     Route: 041
     Dates: start: 20190213, end: 20190213

REACTIONS (2)
  - Prescribed underdose [Unknown]
  - Deafness [Not Recovered/Not Resolved]

NARRATIVE: CASE EVENT DATE: 20181114
